FAERS Safety Report 16413032 (Version 1)
Quarter: 2019Q2

REPORT INFORMATION
  Report Type: Spontaneous
  Country: US (occurrence: US)
  Receive Date: 20190611
  Receipt Date: 20190611
  Transmission Date: 20190711
  Serious: No
  Sender: FDA-Public Use
  Company Number: US-UNITED THERAPEUTICS-UNT-2019-009853

PATIENT
  Age: 51 Year
  Sex: Female

DRUGS (5)
  1. ADEMPAS [Suspect]
     Active Substance: RIOCIGUAT
     Indication: PRODUCT USED FOR UNKNOWN INDICATION
     Dosage: UNK
     Route: 065
  2. REMODULIN [Suspect]
     Active Substance: TREPROSTINIL
     Indication: PULMONARY ARTERIAL HYPERTENSION
     Dosage: 0.080 ?G/KG, CONTINUING
     Route: 041
     Dates: start: 20180317
  3. ADEMPAS [Suspect]
     Active Substance: RIOCIGUAT
     Dosage: 1.5 MG, UNK
     Route: 065
  4. ADEMPAS [Suspect]
     Active Substance: RIOCIGUAT
     Dosage: 2 MG, UNK
     Route: 065
     Dates: start: 20190531
  5. ADEMPAS [Suspect]
     Active Substance: RIOCIGUAT
     Dosage: 2 MG, UNK
     Route: 065

REACTIONS (3)
  - Hypotension [Unknown]
  - Malaise [Unknown]
  - Dizziness [Unknown]

NARRATIVE: CASE EVENT DATE: 20190531
